FAERS Safety Report 5535698-8 (Version None)
Quarter: 2007Q4

REPORT INFORMATION
  Report Type: 
  Country: None (occurrence: None)
  Receive Date: 20071206
  Receipt Date: 20070307
  Transmission Date: 20080405
  Serious: Yes (Other)
  Sender: FDA-Public Use
  Company Number: US-AMGEN-STX212209

PATIENT
  Sex: Female

DRUGS (9)
  1. ENBREL [Suspect]
     Indication: PSORIATIC ARTHROPATHY
     Route: 065
     Dates: start: 20050601, end: 20061101
  2. METHOTREXATE [Concomitant]
     Route: 065
     Dates: start: 20050401, end: 20060401
  3. VYTORIN [Concomitant]
     Route: 065
  4. NEXIUM [Concomitant]
     Route: 065
  5. AMITRIPTLINE HCL [Concomitant]
     Route: 065
  6. IBUPROFEN [Concomitant]
     Route: 065
  7. FOLIC ACID [Concomitant]
     Route: 065
  8. VITAMIN E [Concomitant]
     Route: 065
  9. VITAMIN CAP [Concomitant]
     Route: 065

REACTIONS (1)
  - FOLLICLE CENTRE LYMPHOMA, FOLLICULAR GRADE I, II, III [None]
